FAERS Safety Report 6618490-2 (Version None)
Quarter: 2010Q1

REPORT INFORMATION
  Report Type: 
  Country: None (occurrence: None)
  Receive Date: 20100308
  Receipt Date: 20100303
  Transmission Date: 20100710
  Serious: Yes (Death)
  Sender: FDA-Public Use
  Company Number: US-GILEAD-2010-0027458

PATIENT
  Sex: Female
  Weight: 54.48 kg

DRUGS (14)
  1. LETAIRIS [Suspect]
     Indication: PULMONARY ARTERIAL HYPERTENSION
     Route: 048
     Dates: start: 20071121, end: 20100223
  2. LEVAQUIN [Concomitant]
  3. DOXYCYCLINE [Concomitant]
  4. PREDNISONE [Concomitant]
  5. NASONEX [Concomitant]
  6. ATIVAN [Concomitant]
  7. OXYGEN [Concomitant]
  8. SINGULAIR [Concomitant]
  9. ZYRTEC [Concomitant]
  10. METFORMIN HYDROCHLORIDE [Concomitant]
  11. SPIRONOLACTONE [Concomitant]
  12. BACTRIM [Concomitant]
  13. LEVOTHYROXINE [Concomitant]
  14. ZEGERID [Concomitant]

REACTIONS (1)
  - DEATH [None]
